FAERS Safety Report 15980425 (Version 3)
Quarter: 2019Q2

REPORT INFORMATION
  Report Type: Report from Study
  Country: CA (occurrence: CA)
  Receive Date: 20190219
  Receipt Date: 20190415
  Transmission Date: 20190711
  Serious: Yes (Hospitalization, Disabling, Other)
  Sender: FDA-Public Use
  Company Number: CA-PFIZER INC-2019041728

PATIENT
  Age: 56 Year
  Sex: Female
  Weight: 76.6 kg

DRUGS (13)
  1. ATORVASTATIN [Concomitant]
     Active Substance: ATORVASTATIN
     Dosage: 10 MG, 1X/DAY
     Route: 048
  2. FUROSEMIDE. [Concomitant]
     Active Substance: FUROSEMIDE
     Dosage: 20 MG, 1X/DAY
     Route: 048
  3. GLUCOPHAGE [Concomitant]
     Active Substance: METFORMIN HYDROCHLORIDE
     Dosage: 500 MG, 2X/DAY WITH MEALS
  4. METFORMIN [Concomitant]
     Active Substance: METFORMIN HYDROCHLORIDE
     Dosage: 500 MG, 2X/DAY
     Route: 048
  5. ASAPHEN [Concomitant]
     Active Substance: ASPIRIN
     Dosage: 80 MG (1 TAB), 1X/DAY
  6. TRAZODONE [Concomitant]
     Active Substance: TRAZODONE HYDROCHLORIDE
     Dosage: 50 MG (1 TAB), 1X/DAY AT BEDTIME AS NEEDED
  7. LORLATINIB [Suspect]
     Active Substance: LORLATINIB
     Dosage: UNK
     Dates: end: 20190115
  8. DOM ATORVASTATIN [Concomitant]
     Dosage: 10 MG (1 TAB), 1X/DAY
  9. PULMICORT TURBUHALER [Concomitant]
     Active Substance: BUDESONIDE
     Dosage: 200 UG, 1 INHALATION 2X/DAY
  10. DERMOVATE [Concomitant]
     Active Substance: CLOBETASOL
     Dosage: 0.05 %, APPLIED 2X/DAY TO AFFECTED AREA
  11. CIPROFLOXACIN. [Concomitant]
     Active Substance: CIPROFLOXACIN
     Indication: URINARY TRACT INFECTION
     Dosage: 250 MG, 2X/DAY
     Route: 048
     Dates: start: 201812
  12. TEVA FUROSEMIDE [Concomitant]
     Dosage: 20 MG (1 TAB), 1X/DAY
  13. LORLATINIB [Suspect]
     Active Substance: LORLATINIB
     Indication: NON-SMALL CELL LUNG CANCER
     Dosage: 100 MG, DAILY
     Route: 048
     Dates: start: 201808, end: 20190115

REACTIONS (12)
  - Hypercalcaemia [Recovered/Resolved]
  - Hypomagnesaemia [Recovering/Resolving]
  - Acute kidney injury [Recovering/Resolving]
  - Paraesthesia [Recovering/Resolving]
  - Leukoencephalopathy [Unknown]
  - Hallucination, auditory [Recovering/Resolving]
  - Muscular weakness [Recovering/Resolving]
  - Cognitive disorder [Recovering/Resolving]
  - Hypoacusis [Recovering/Resolving]
  - Headache [Recovering/Resolving]
  - Dyspraxia [Recovering/Resolving]
  - Haemoptysis [Recovered/Resolved]

NARRATIVE: CASE EVENT DATE: 2018
